FAERS Safety Report 5403685-6 (Version None)
Quarter: 2007Q3

REPORT INFORMATION
  Report Type: 
  Country: None (occurrence: None)
  Receive Date: 20070802
  Receipt Date: 20070730
  Transmission Date: 20080115
  Serious: Yes (Death)
  Sender: FDA-Public Use
  Company Number: JP-BAYER-200710529BYL

PATIENT
  Age: 33 Year
  Sex: Female

DRUGS (7)
  1. AVELOX [Suspect]
     Indication: BRONCHITIS
     Dosage: UNIT DOSE: 400 MG
     Route: 048
     Dates: start: 20070723, end: 20070729
  2. CLARITHROMYCIN [Concomitant]
     Route: 065
     Dates: start: 20070720, end: 20070722
  3. METHISTA [Concomitant]
     Indication: BRONCHITIS
     Dosage: UNIT DOSE: 250 MG
     Route: 048
     Dates: start: 20070723, end: 20070729
  4. MUCOSOLVAN [Concomitant]
     Indication: BRONCHITIS
     Dosage: UNIT DOSE: 15 MG
     Route: 048
     Dates: start: 20070723, end: 20070729
  5. SEKINARIN [Concomitant]
     Route: 062
     Dates: start: 20070723, end: 20070729
  6. CHLOPHEDRIN S [Concomitant]
     Route: 048
     Dates: start: 20070723, end: 20070729
  7. ROSEOL [Concomitant]
     Route: 048
     Dates: start: 20070723, end: 20070729

REACTIONS (1)
  - DEATH [None]
